FAERS Safety Report 14091803 (Version 1)
Quarter: 2017Q4

REPORT INFORMATION
  Report Type: Spontaneous
  Country: US (occurrence: US)
  Receive Date: 20171013
  Receipt Date: 20171013
  Transmission Date: 20180321
  Serious: Yes (Hospitalization)
  Sender: FDA-Public Use
  Company Number: None

PATIENT
  Age: 51 Year
  Sex: Female
  Weight: 61.65 kg

DRUGS (5)
  1. RED YEAST RICE [Concomitant]
     Active Substance: DIETARY SUPPLEMENT
  2. TURMERIC [Concomitant]
     Active Substance: HERBALS\TURMERIC
  3. VITAMIN C [Concomitant]
     Active Substance: ASCORBIC ACID
  4. BELVIQ XR [Suspect]
     Active Substance: LORCASERIN HYDROCHLORIDE
     Indication: HIGH DENSITY LIPOPROTEIN INCREASED
     Dosage: ?          QUANTITY:1 TABLET(S);?
     Route: 048
     Dates: start: 20170705, end: 20171004
  5. MULTI-VITAMINS [Concomitant]

REACTIONS (9)
  - Dizziness [None]
  - Fear [None]
  - Dyspepsia [None]
  - Tremor [None]
  - Nausea [None]
  - Vertigo [None]
  - Syncope [None]
  - Asthenia [None]
  - Pain [None]

NARRATIVE: CASE EVENT DATE: 20171008
